FAERS Safety Report 8227199-3 (Version None)
Quarter: 2012Q1

REPORT INFORMATION
  Report Type: 
  Country: None (occurrence: None)
  Receive Date: 20120322
  Receipt Date: 20120308
  Transmission Date: 20120608
  Serious: Yes (Other)
  Sender: FDA-Public Use
  Company Number: PT-AMGEN-PRTSP2012013184

PATIENT
  Age: 48 Year
  Sex: Male

DRUGS (4)
  1. TERBINAFINE HCL [Concomitant]
     Indication: ONYCHOMYCOSIS
     Dosage: 250 MG, 1X/DAY
     Route: 048
     Dates: start: 20110701
  2. ENBREL [Suspect]
     Indication: ANKYLOSING SPONDYLITIS
     Dosage: 50 MG, 2X/WEEK
     Route: 058
     Dates: start: 20110701
  3. METHOTREXATE [Concomitant]
     Indication: ANKYLOSING SPONDYLITIS
     Dosage: 20 MG, WEEKLY
     Route: 048
     Dates: start: 20110701
  4. FOLIC ACID [Concomitant]
     Indication: ANKYLOSING SPONDYLITIS
     Dosage: 5 MG, WEEKLY
     Route: 048
     Dates: start: 20110701

REACTIONS (1)
  - RENAL COLIC [None]
